FAERS Safety Report 23787351 (Version 2)
Quarter: 2024Q2

REPORT INFORMATION
  Report Type: Report from Study
  Country: AR (occurrence: AR)
  Receive Date: 20240426
  Receipt Date: 20240618
  Transmission Date: 20240716
  Serious: Yes (Other)
  Sender: FDA-Public Use
  Company Number: AR-002147023-NVSC2023AR268692

PATIENT
  Age: 1 Year
  Sex: Female

DRUGS (2)
  1. ZOLGENSMA [Suspect]
     Active Substance: ONASEMNOGENE ABEPARVOVEC-XIOI
     Indication: Spinal muscular atrophy
     Dosage: UNK, ONCE/SINGLE
     Route: 042
     Dates: start: 20231207
  2. PREDNISONE [Concomitant]
     Active Substance: PREDNISONE
     Indication: Product used for unknown indication
     Dosage: UNK
     Route: 065

REACTIONS (12)
  - White blood cell count decreased [Unknown]
  - Aspartate aminotransferase abnormal [Unknown]
  - Troponin abnormal [Unknown]
  - Blood cholesterol increased [Unknown]
  - Platelet count abnormal [Unknown]
  - Enzyme level abnormal [Unknown]
  - Platelet count decreased [Recovering/Resolving]
  - Vomiting [Unknown]
  - Hepatic enzyme increased [Unknown]
  - Alanine aminotransferase abnormal [Unknown]
  - Blood alkaline phosphatase abnormal [Unknown]
  - Troponin increased [Unknown]

NARRATIVE: CASE EVENT DATE: 20231208
